FAERS Safety Report 9565944 (Version 2)
Quarter: 2013Q4

REPORT INFORMATION
  Report Type: Spontaneous
  Country: AU (occurrence: AU)
  Receive Date: 20130930
  Receipt Date: 20131125
  Transmission Date: 20140711
  Serious: Yes (Death)
  Sender: FDA-Public Use
  Company Number: AU-ABBVIE-13P-008-1152084-00

PATIENT
  Age: 83 Year
  Sex: Male
  Weight: 85 kg

DRUGS (1)
  1. LUCRIN [Suspect]
     Indication: PRODUCT USED FOR UNKNOWN INDICATION
     Dates: start: 20121015, end: 201303

REACTIONS (1)
  - Prostate cancer [Fatal]
